APPROVED DRUG PRODUCT: LIPITOR
Active Ingredient: ATORVASTATIN CALCIUM
Strength: EQ 20MG BASE
Dosage Form/Route: TABLET;ORAL
Application: N020702 | Product #002 | TE Code: AB
Applicant: UPJOHN MANUFACTURING IRELAND UNLTD
Approved: Dec 17, 1996 | RLD: Yes | RS: No | Type: RX